FAERS Safety Report 9190517 (Version 1)
Quarter: 2013Q1

REPORT INFORMATION
  Report Type: Spontaneous
  Country: US (occurrence: US)
  Receive Date: 20130326
  Receipt Date: 20130326
  Transmission Date: 20140127
  Serious: Yes (Other)
  Sender: FDA-Public Use
  Company Number: US-PFIZER INC-2013089344

PATIENT
  Sex: 0

DRUGS (1)
  1. CHAPSTICK LIP BALM [Suspect]
     Dosage: UNK

REACTIONS (2)
  - Oral herpes [Unknown]
  - Infectious mononucleosis [Unknown]
